FAERS Safety Report 18751790 (Version 5)
Quarter: 2023Q4

REPORT INFORMATION
  Report Type: Other
  Country: EG (occurrence: None)
  Receive Date: 20210118
  Receipt Date: 20231121
  Transmission Date: 20240110
  Serious: Yes (Other)
  Sender: FDA-Public Use
  Company Number: EG-ROCHE-2655687

PATIENT
  Age: 35 Year
  Sex: Female
  Weight: 78 kg

DRUGS (1)
  1. OCREVUS [Suspect]
     Active Substance: OCRELIZUMAB
     Indication: Multiple sclerosis
     Route: 042
     Dates: start: 20190717

REACTIONS (9)
  - Multiple sclerosis [Not Recovered/Not Resolved]
  - Anaemia [Not Recovered/Not Resolved]
  - Muscle spasms [Unknown]
  - Hypoaesthesia [Unknown]
  - Tremor [Unknown]
  - Muscular weakness [Unknown]
  - Back pain [Unknown]
  - Hypoaesthesia [Not Recovered/Not Resolved]
  - Pain in extremity [Not Recovered/Not Resolved]

NARRATIVE: CASE EVENT DATE: 20200730
